FAERS Safety Report 20363292 (Version 1)
Quarter: 2022Q1

REPORT INFORMATION
  Report Type: Spontaneous
  Country: US (occurrence: None)
  Receive Date: 20220121
  Receipt Date: 20220121
  Transmission Date: 20220423
  Serious: Yes (Other)
  Sender: FDA-Public Use
  Company Number: None

PATIENT
  Age: 79 Year
  Sex: Female
  Weight: 69.75 kg

DRUGS (7)
  1. OLMESARTAN [Suspect]
     Active Substance: OLMESARTAN
     Indication: Hypertension
     Dosage: OTHER QUANTITY : 1 TABLET(S);?
     Route: 048
  2. ATORVASTATIN [Concomitant]
     Active Substance: ATORVASTATIN
  3. AMLODIPINE [Concomitant]
     Active Substance: AMLODIPINE BESYLATE
  4. LEVOTHYROXINE [Concomitant]
     Active Substance: LEVOTHYROXINE
  5. MULTAQ [Concomitant]
     Active Substance: DRONEDARONE
  6. VITAMINS [Concomitant]
     Active Substance: VITAMINS
  7. FISH OIL [Concomitant]
     Active Substance: FISH OIL

REACTIONS (3)
  - Diarrhoea [None]
  - Weight decreased [None]
  - Dehydration [None]

NARRATIVE: CASE EVENT DATE: 20211205
